FAERS Safety Report 25383507 (Version 2)
Quarter: 2025Q3

REPORT INFORMATION
  Report Type: Spontaneous
  Country: GB (occurrence: GB)
  Receive Date: 20250602
  Receipt Date: 20250702
  Transmission Date: 20251021
  Serious: Yes (Hospitalization)
  Sender: JUBILANT
  Company Number: None

PATIENT
  Sex: Male

DRUGS (7)
  1. OLANZAPINE [Suspect]
     Active Substance: OLANZAPINE
     Indication: Product used for unknown indication
     Dosage: 20 MG, ONCE PER DAY, IN THE EVENING
     Route: 048
  2. CLOZARIL [Suspect]
     Active Substance: CLOZAPINE
     Indication: Schizophrenia
     Route: 048
     Dates: start: 20240108, end: 2024
  3. CLOZARIL [Suspect]
     Active Substance: CLOZAPINE
     Route: 048
     Dates: start: 20250104, end: 20250106
  4. CLOZARIL [Suspect]
     Active Substance: CLOZAPINE
     Route: 048
     Dates: start: 20250509
  5. CLOZARIL [Suspect]
     Active Substance: CLOZAPINE
     Route: 065
     Dates: start: 202505
  6. LEVETIRACETAM [Concomitant]
     Active Substance: LEVETIRACETAM
     Indication: Product used for unknown indication
     Dosage: 1500 MG, 2 TIMES PER DAY
     Route: 048
  7. LORAZEPAM [Concomitant]
     Active Substance: LORAZEPAM
     Indication: Catatonia
     Dosage: 1 MG, 4 TIMES PER DAY
     Route: 048

REACTIONS (4)
  - Constipation [Unknown]
  - Treatment noncompliance [Unknown]
  - Hypophagia [Unknown]
  - Dehydration [Unknown]

NARRATIVE: CASE EVENT DATE: 20250101
